FAERS Safety Report 19724670 (Version 2)
Quarter: 2021Q3

REPORT INFORMATION
  Report Type: Spontaneous
  Country: US (occurrence: US)
  Receive Date: 20210820
  Receipt Date: 20210827
  Transmission Date: 20211014
  Serious: No
  Sender: FDA-Public Use
  Company Number: US-JNJFOC-20210822399

PATIENT
  Sex: Female

DRUGS (1)
  1. WOMENS ROGAINE [Suspect]
     Active Substance: MINOXIDIL
     Indication: ALOPECIA
     Dosage: AS MUCH AS SHE NEEDED TO COVER ALL BALDING/THINNING SPOTS ONCE A DAY
     Route: 061
     Dates: start: 202101

REACTIONS (2)
  - Headache [Unknown]
  - Hair growth abnormal [Unknown]
